FAERS Safety Report 7385510-X (Version None)
Quarter: 2011Q1

REPORT INFORMATION
  Report Type: 
  Country: None (occurrence: None)
  Receive Date: 20110331
  Receipt Date: 20110317
  Transmission Date: 20110831
  Serious: Yes (Death, Hospitalization)
  Sender: FDA-Public Use
  Company Number: US-BIOGENIDEC-2009BI027520

PATIENT
  Age: 60 Year
  Sex: Female

DRUGS (1)
  1. TYSABRI [Suspect]
     Indication: MULTIPLE SCLEROSIS
     Route: 042
     Dates: start: 20090203

REACTIONS (6)
  - APHONIA [None]
  - REFUSAL OF TREATMENT BY PATIENT [None]
  - BULBAR PALSY [None]
  - ASPIRATION [None]
  - QUADRIPLEGIA [None]
  - CARDIAC ARREST [None]
